FAERS Safety Report 24924003 (Version 1)
Quarter: 2025Q1

REPORT INFORMATION
  Report Type: Spontaneous
  Country: US (occurrence: US)
  Receive Date: 20250204
  Receipt Date: 20250204
  Transmission Date: 20250408
  Serious: Yes (Other)
  Sender: BRISTOL-MYERS SQUIBB COMPANY
  Company Number: US-BRISTOL-MYERS SQUIBB COMPANY-2025-014916

PATIENT
  Age: 70 Year
  Sex: Female
  Weight: 71.67 kg

DRUGS (1)
  1. POMALYST [Suspect]
     Active Substance: POMALIDOMIDE
     Indication: Plasma cell myeloma
     Route: 048

REACTIONS (8)
  - Femur fracture [Unknown]
  - Upper limb fracture [Unknown]
  - Skin cancer [Unknown]
  - Fall [Unknown]
  - Arthropathy [Unknown]
  - Loss of consciousness [Unknown]
  - Limb injury [Unknown]
  - Oesophageal disorder [Unknown]

NARRATIVE: CASE EVENT DATE: 20210101
